FAERS Safety Report 6738450-0 (Version None)
Quarter: 2010Q2

REPORT INFORMATION
  Report Type: 
  Country: None (occurrence: None)
  Receive Date: 20100524
  Receipt Date: 20100513
  Transmission Date: 20101027
  Serious: Yes (Hospitalization)
  Sender: FDA-Public Use
  Company Number: IT-ELI_LILLY_AND_COMPANY-IT201004003846

PATIENT
  Sex: Male

DRUGS (7)
  1. GEMZAR [Suspect]
     Indication: BLADDER NEOPLASM
     Dosage: 1600 MG, (1 VIAL OF 100 MG AND 3 VIALS OF 200 MG)
     Route: 065
     Dates: start: 20100325, end: 20100401
  2. TRANSTEC [Concomitant]
     Dosage: 140 MG, EVERY THREE DAYS
     Route: 065
  3. GLIBOMET [Concomitant]
     Dosage: UNK, 2/D
  4. DELTACORTENE [Concomitant]
     Dosage: 25 MG, 1/2 TABLET
     Route: 065
  5. LEVOPRAID [Concomitant]
     Dosage: 15 D/F, 3/D
     Route: 065
  6. LANSOX [Concomitant]
     Dosage: 30 MG, DAILY (1/D)
     Route: 065
  7. CARBOPLATIN [Concomitant]
     Dosage: 500 MG, UNKNOWN
     Route: 065
     Dates: start: 20100325, end: 20100325

REACTIONS (3)
  - ACUTE MYOCARDIAL INFARCTION [None]
  - PANCYTOPENIA [None]
  - SYNCOPE [None]
